FAERS Safety Report 25724433 (Version 2)
Quarter: 2025Q3

REPORT INFORMATION
  Report Type: Spontaneous
  Country: EU (occurrence: EU)
  Receive Date: 20250826
  Receipt Date: 20250911
  Transmission Date: 20251020
  Serious: Yes (Life-Threatening)
  Sender: TEVA
  Company Number: EU-TEVA-VS-3364851

PATIENT
  Age: 60 Year
  Sex: Male

DRUGS (1)
  1. AMOXICILLIN\CLAVULANIC ACID [Suspect]
     Active Substance: AMOXICILLIN\CLAVULANIC ACID
     Indication: Urinary tract infection
     Route: 065

REACTIONS (1)
  - Kounis syndrome [Unknown]
